FAERS Safety Report 8101841-X (Version None)
Quarter: 2012Q1

REPORT INFORMATION
  Report Type: 
  Country: None (occurrence: None)
  Receive Date: 20120131
  Receipt Date: 20120126
  Transmission Date: 20120608
  Serious: Yes (Other)
  Sender: FDA-Public Use
  Company Number: PHHY2012FR007079

PATIENT
  Age: 4 Year
  Sex: Female

DRUGS (2)
  1. TEGRETOL [Suspect]
     Indication: EPILEPSY
     Dosage: UNK UKN, UNK
     Route: 048
  2. KEPPRA [Suspect]
     Dosage: UNK UKN, UNK

REACTIONS (4)
  - BRUXISM [None]
  - RETT'S DISORDER [None]
  - GASTROINTESTINAL DISORDER [None]
  - AUTISM [None]
